FAERS Safety Report 24309230 (Version 2)
Quarter: 2024Q4

REPORT INFORMATION
  Report Type: Spontaneous
  Country: US (occurrence: US)
  Receive Date: 20240911
  Receipt Date: 20241007
  Transmission Date: 20250115
  Serious: No
  Sender: MERCK
  Company Number: US-009507513-2409USA000810

PATIENT
  Age: 14 Year

DRUGS (9)
  1. TEMODAR [Suspect]
     Active Substance: TEMOZOLOMIDE
     Indication: Medulloblastoma
     Dosage: UNK
     Route: 048
  2. BEVACIZUMAB [Concomitant]
     Active Substance: BEVACIZUMAB
     Indication: Medulloblastoma
  3. ETOPOSIDE [Concomitant]
     Active Substance: ETOPOSIDE
     Indication: Medulloblastoma
  4. THALIDOMIDE [Concomitant]
     Active Substance: THALIDOMIDE
     Indication: Medulloblastoma
  5. CYCLOPHOSPHAMIDE [Concomitant]
     Active Substance: CYCLOPHOSPHAMIDE
     Indication: Medulloblastoma
  6. CELECOXIB [Concomitant]
     Active Substance: CELECOXIB
     Indication: Medulloblastoma
  7. FENOFIBRATE [Concomitant]
     Active Substance: FENOFIBRATE
     Indication: Medulloblastoma
  8. CYTARABINE [Concomitant]
     Active Substance: CYTARABINE
     Indication: Medulloblastoma
  9. IRINOTECAN [Concomitant]
     Active Substance: IRINOTECAN
     Indication: Medulloblastoma

REACTIONS (1)
  - Product use in unapproved indication [Unknown]
